FAERS Safety Report 5503510-9 (Version None)
Quarter: 2007Q4

REPORT INFORMATION
  Report Type: 
  Country: None (occurrence: None)
  Receive Date: 20071031
  Receipt Date: 20071030
  Transmission Date: 20080405
  Serious: Yes (Life-Threatening, Hospitalization)
  Sender: FDA-Public Use
  Company Number: CA-MERCK-0710CAN00179

PATIENT
  Age: 66 Year
  Sex: Female

DRUGS (4)
  1. COZAAR [Suspect]
     Indication: HYPERTENSION
     Route: 048
     Dates: start: 20061101, end: 20070123
  2. COZAAR [Suspect]
     Route: 048
     Dates: start: 20070124
  3. ROSUVASTATIN CALCIUM [Concomitant]
     Indication: DYSLIPIDAEMIA
     Route: 065
     Dates: start: 20060404
  4. PAROXETINE HYDROCHLORIDE [Concomitant]
     Indication: ANXIETY
     Route: 065
     Dates: start: 19990108

REACTIONS (1)
  - SUBARACHNOID HAEMORRHAGE [None]
